FAERS Safety Report 25772926 (Version 3)
Quarter: 2025Q4

REPORT INFORMATION
  Report Type: Spontaneous
  Country: US (occurrence: US)
  Receive Date: 20250908
  Receipt Date: 20251010
  Transmission Date: 20260118
  Serious: No
  Sender: PFIZER
  Company Number: US-PFIZER INC-PV202400168420

PATIENT
  Age: 7 Year
  Sex: Male
  Weight: 21.8 kg

DRUGS (1)
  1. GENOTROPIN [Suspect]
     Active Substance: SOMATROPIN
     Indication: Short stature
     Dosage: 1.1 MG, DAILY
     Route: 058
     Dates: start: 20241107

REACTIONS (2)
  - Product prescribing error [Unknown]
  - Device issue [Unknown]

NARRATIVE: CASE EVENT DATE: 20241107
